FAERS Safety Report 8599929-2 (Version None)
Quarter: 2012Q3

REPORT INFORMATION
  Report Type: 
  Country: None (occurrence: None)
  Receive Date: 20120816
  Receipt Date: 20120618
  Transmission Date: 20120928
  Serious: Yes (Other)
  Sender: FDA-Public Use
  Company Number: US-AMGEN-USASP2011020574

PATIENT
  Sex: Female

DRUGS (7)
  1. CORTICOSTEROIDS [Concomitant]
  2. CYCLOPHOSPHAMIDE [Concomitant]
  3. INTERFERON ALPHA 1-A [Concomitant]
  4. IMMUNE GLOBULIN NOS [Concomitant]
  5. RITUXIMAB [Concomitant]
  6. NPLATE [Suspect]
     Indication: IDIOPATHIC THROMBOCYTOPENIC PURPURA
     Dates: start: 20100913, end: 20101227
  7. DANAZOL [Concomitant]

REACTIONS (1)
  - DRUG INEFFECTIVE [None]
